FAERS Safety Report 4456819-4 (Version None)
Quarter: 2004Q3

REPORT INFORMATION
  Report Type: 
  Country: None (occurrence: None)
  Receive Date: 20040921
  Receipt Date: 20040908
  Transmission Date: 20050211
  Serious: Yes (Hospitalization)
  Sender: FDA-Public Use
  Company Number: 2004IC000858

PATIENT
  Age: 67 Year
  Sex: Male

DRUGS (5)
  1. FLUOROURACIL [Suspect]
     Indication: GASTRIC CANCER
     Dosage: 500 MG/M2; INTRAVENOUS
     Route: 042
     Dates: start: 20040624
  2. CALCIUM LEVOFOLINATE (CALCIUM LEVOFOLINATE) [Suspect]
     Indication: GASTRIC CANCER
     Dosage: 250 MG/M2; INTRAVENOUS
     Route: 042
     Dates: start: 20040624
  3. FERROMIA [Concomitant]
  4. CINAL [Concomitant]
  5. MAGNESIUM OXIDE [Concomitant]

REACTIONS (4)
  - BRAIN STEM INFARCTION [None]
  - DIFFICULTY IN WALKING [None]
  - DIZZINESS [None]
  - SPEECH DISORDER [None]
